FAERS Safety Report 12197713 (Version 1)
Quarter: 2016Q1

REPORT INFORMATION
  Report Type: Spontaneous
  Country: None (occurrence: None)
  Receive Date: 20160321
  Receipt Date: 20160321
  Transmission Date: 20160526
  Serious: Yes (Other)
  Sender: FDA-Public Use
  Company Number: None

PATIENT

DRUGS (1)
  1. VYVANSE [Suspect]
     Active Substance: LISDEXAMFETAMINE DIMESYLATE
     Indication: ATTENTION DEFICIT/HYPERACTIVITY DISORDER
     Route: 048
     Dates: start: 2013, end: 2014

REACTIONS (5)
  - Feeling abnormal [None]
  - Depression [None]
  - Crying [None]
  - Screaming [None]
  - Depressed mood [None]

NARRATIVE: CASE EVENT DATE: 20140910
